FAERS Safety Report 14419983 (Version 2)
Quarter: 2019Q1

REPORT INFORMATION
  Report Type: Spontaneous
  Country: US (occurrence: US)
  Receive Date: 20180122
  Receipt Date: 20190129
  Transmission Date: 20190417
  Serious: Yes (Other)
  Sender: FDA-Public Use
  Company Number: US-PFIZER INC-2018024672

PATIENT
  Age: 79 Year
  Sex: Female
  Weight: 32 kg

DRUGS (4)
  1. LYRICA [Suspect]
     Active Substance: PREGABALIN
     Indication: NEUROPATHY PERIPHERAL
     Dosage: 25 MG, 2X/DAY
     Route: 048
     Dates: start: 2017
  2. ATIVAN [Concomitant]
     Active Substance: LORAZEPAM
     Dosage: UNK
  3. ZYRTEC [Concomitant]
     Active Substance: CETIRIZINE HYDROCHLORIDE
     Indication: HYPERSENSITIVITY
     Dosage: 10 MG, 1X/DAY
  4. LYRICA [Suspect]
     Active Substance: PREGABALIN
     Indication: ARTHRITIS
     Dosage: 200 MG, 3X/DAY (2 100 MG CAPSULES BY MOUTH THREE TIMES A DAY)
     Route: 048
     Dates: start: 201901

REACTIONS (9)
  - Feeling abnormal [Recovered/Resolved]
  - Anosmia [Unknown]
  - Brain injury [Recovering/Resolving]
  - Decreased appetite [Not Recovered/Not Resolved]
  - Aggression [Recovered/Resolved]
  - Memory impairment [Unknown]
  - Drug ineffective [Unknown]
  - Constipation [Recovered/Resolved]
  - Drug hypersensitivity [Recovered/Resolved]

NARRATIVE: CASE EVENT DATE: 2017
